FAERS Safety Report 7272846-6 (Version None)
Quarter: 2011Q1

REPORT INFORMATION
  Report Type: 
  Country: None (occurrence: None)
  Receive Date: 20110203
  Receipt Date: 20110126
  Transmission Date: 20110831
  Serious: Yes (Other)
  Sender: FDA-Public Use
  Company Number: JP-PFIZER INC-2011024125

PATIENT
  Age: 54 Year
  Sex: Male

DRUGS (7)
  1. BANAN [Suspect]
     Indication: NASOPHARYNGITIS
     Dosage: 100 MG, 2X/DAY
     Route: 048
     Dates: start: 20110112, end: 20110112
  2. METHY F [Concomitant]
  3. CHLORPHENIRAMINE MALEATE [Concomitant]
  4. MEDICON [Concomitant]
  5. MUCODYNE [Concomitant]
  6. MIYA BM [Concomitant]
  7. CALONAL [Concomitant]

REACTIONS (1)
  - LIVER DISORDER [None]
